FAERS Safety Report 21080932 (Version 1)
Quarter: 2022Q3

REPORT INFORMATION
  Report Type: Spontaneous
  Country: CA (occurrence: CA)
  Receive Date: 20220714
  Receipt Date: 20220714
  Transmission Date: 20221027
  Serious: Yes (Other)
  Sender: FDA-Public Use
  Company Number: CA-Vifor (International) Inc.-VIT-2022-04888

PATIENT
  Age: 66 Year
  Sex: Male

DRUGS (1)
  1. VELPHORO [Suspect]
     Active Substance: SUCROFERRIC OXYHYDROXIDE
     Indication: Product used for unknown indication
     Dosage: ONE TABLET 500MG AFTER MEAL
     Route: 048
     Dates: start: 20220708

REACTIONS (2)
  - Somnolence [Unknown]
  - Dizziness [Unknown]

NARRATIVE: CASE EVENT DATE: 20220708
